FAERS Safety Report 9205789 (Version 1)
Quarter: 2013Q2

REPORT INFORMATION
  Report Type: Spontaneous
  Country: US (occurrence: US)
  Receive Date: 20130403
  Receipt Date: 20130403
  Transmission Date: 20140414
  Serious: Yes (Hospitalization)
  Sender: FDA-Public Use
  Company Number: US-AMGEN-USASP2013021346

PATIENT
  Sex: Female

DRUGS (4)
  1. PROLIA [Suspect]
     Indication: OSTEOPOROSIS
     Dosage: 60 MG, Q6MO
     Dates: start: 20130314
  2. ZYRTEC [Concomitant]
     Dosage: UNK
  3. CALCIUM WITH VITAMIN D [Concomitant]
     Dosage: UNK
  4. ASTHMA INHALER [Concomitant]
     Dosage: UNK

REACTIONS (3)
  - Dyspnoea [Unknown]
  - Rash generalised [Unknown]
  - Urticaria [Unknown]
